FAERS Safety Report 12312610 (Version 2)
Quarter: 2016Q3

REPORT INFORMATION
  Report Type: Spontaneous
  Country: US (occurrence: US)
  Receive Date: 20160428
  Receipt Date: 20160711
  Transmission Date: 20161109
  Serious: Yes (Death, Hospitalization)
  Sender: FDA-Public Use
  Company Number: US-PFIZER INC-2016226145

PATIENT
  Age: 70 Year
  Sex: Female

DRUGS (7)
  1. ACETAMINOPHEN + COD. PHOSP. [Concomitant]
     Active Substance: ACETAMINOPHEN\CODEINE PHOSPHATE
     Indication: PAIN
     Dosage: 325 MG, UNK
     Route: 048
  2. LACTOBACILLUS ACIDOPHILUS COMPOUND [Concomitant]
     Dosage: UNK, DAILY,(1 CAP )
     Route: 048
  3. FONDAPARINUX SODIUM. [Concomitant]
     Active Substance: FONDAPARINUX SODIUM
     Dosage: 7.5 MG, DAILY (DAYS 14 REF 2 SYR )
     Route: 058
  4. IBRANCE [Suspect]
     Active Substance: PALBOCICLIB
     Indication: BREAST CANCER
     Dosage: 100 MG, 1X/DAY (21 DAYS)
     Route: 048
     Dates: start: 20160307, end: 20160321
  5. SITAGLIPTIN METFORMIN [Concomitant]
     Active Substance: METFORMIN HYDROCHLORIDE\SITAGLIPTIN PHOSPHATE
     Dosage: 50 MG, DAILY (REF 3 TAB )
     Route: 048
  6. DOCUSATE SODIUM AND SENNA [Concomitant]
     Active Substance: DOCUSATE SODIUM\SENNOSIDES
     Dosage: 100 MG, (HS)
     Route: 048
  7. LEVOFLOXACIN. [Concomitant]
     Active Substance: LEVOFLOXACIN
     Dosage: 750 MG, UNK,(EVERYOTHERDAY)
     Route: 048
     Dates: end: 20160304

REACTIONS (4)
  - Disease progression [Fatal]
  - Thrombocytopenia [Unknown]
  - Diarrhoea [Unknown]
  - Breast cancer [Fatal]

NARRATIVE: CASE EVENT DATE: 20160414
